FAERS Safety Report 7261333-7 (Version None)
Quarter: 2011Q1

REPORT INFORMATION
  Report Type: 
  Country: None (occurrence: None)
  Receive Date: 20110130
  Receipt Date: 20101021
  Transmission Date: 20110831
  Serious: No
  Sender: FDA-Public Use
  Company Number: US-ABBOTT-10P-163-0680021-00

PATIENT
  Age: 61 Year
  Sex: Female

DRUGS (1)
  1. HUMIRA [Suspect]
     Indication: RHEUMATOID ARTHRITIS
     Dates: start: 20091201, end: 20100916

REACTIONS (5)
  - DRY SKIN [None]
  - WEIGHT DECREASED [None]
  - DYSPHONIA [None]
  - SKIN EXFOLIATION [None]
  - DYSPHAGIA [None]
